FAERS Safety Report 6647277-X (Version None)
Quarter: 2010Q1

REPORT INFORMATION
  Report Type: 
  Country: None (occurrence: None)
  Receive Date: 20100323
  Receipt Date: 20100315
  Transmission Date: 20100710
  Serious: Yes (Hospitalization)
  Sender: FDA-Public Use
  Company Number: A0851036A

PATIENT
  Sex: Male

DRUGS (1)
  1. LAMICTAL CD [Suspect]
     Indication: DEPRESSION
     Route: 065
     Dates: start: 20100101

REACTIONS (5)
  - CHEILITIS [None]
  - HEADACHE [None]
  - PYREXIA [None]
  - RASH [None]
  - TONGUE ERUPTION [None]
